FAERS Safety Report 11725568 (Version 1)
Quarter: 2015Q4

REPORT INFORMATION
  Report Type: Spontaneous
  Country: US (occurrence: US)
  Receive Date: 20151111
  Receipt Date: 20151111
  Transmission Date: 20160304
  Serious: Yes (Other)
  Sender: FDA-Public Use
  Company Number: US-CELGENEUS-USA-2015111243

PATIENT
  Sex: Female
  Weight: 63.56 kg

DRUGS (1)
  1. REVLIMID [Suspect]
     Active Substance: LENALIDOMIDE
     Indication: PLASMA CELL MYELOMA
     Dosage: 10 MILLIGRAM
     Route: 048
     Dates: start: 201503

REACTIONS (7)
  - Dysphonia [Unknown]
  - Nausea [Unknown]
  - Cough [Unknown]
  - White blood cell count decreased [Unknown]
  - Oesophageal irritation [Unknown]
  - Abdominal discomfort [Unknown]
  - Vomiting [Unknown]
